FAERS Safety Report 6989340-X (Version None)
Quarter: 2010Q3

REPORT INFORMATION
  Report Type: 
  Country: None (occurrence: None)
  Receive Date: 20100916
  Receipt Date: 20091102
  Transmission Date: 20110219
  Serious: Yes (Hospitalization)
  Sender: FDA-Public Use
  Company Number: IT-PFIZER INC-2009291800

PATIENT
  Age: 70 Year
  Sex: Male

DRUGS (3)
  1. LYRICA [Suspect]
     Indication: NEURALGIA
     Dosage: UNK
  2. ESCITALOPRAM [Concomitant]
  3. LACTULOSE [Concomitant]
     Indication: CONSTIPATION

REACTIONS (2)
  - HYPONATRAEMIA [None]
  - THIRST [None]
